FAERS Safety Report 11965515 (Version 1)
Quarter: 2016Q1

REPORT INFORMATION
  Report Type: Spontaneous
  Country: US (occurrence: None)
  Receive Date: 20160125
  Receipt Date: 20160125
  Transmission Date: 20160526
  Serious: Yes (Hospitalization)
  Sender: FDA-Public Use
  Company Number: None

PATIENT
  Age: 38 Year
  Sex: Male

DRUGS (1)
  1. LITHIUM 300MG CAUBER [Suspect]
     Active Substance: LITHIUM
     Indication: DEPRESSION
     Route: 048

REACTIONS (4)
  - Syncope [None]
  - Ageusia [None]
  - Swelling face [None]
  - Dysphagia [None]

NARRATIVE: CASE EVENT DATE: 20151020
